FAERS Safety Report 11835106 (Version 1)
Quarter: 2015Q4

REPORT INFORMATION
  Report Type: Spontaneous
  Country: US (occurrence: US)
  Receive Date: 20151215
  Receipt Date: 20151215
  Transmission Date: 20160305
  Serious: No
  Sender: FDA-Public Use
  Company Number: US-ASTRAZENECA-2015SF22680

PATIENT
  Sex: Female

DRUGS (2)
  1. BYETTA [Suspect]
     Active Substance: EXENATIDE
     Route: 058
     Dates: end: 201506
  2. BYDUREON [Suspect]
     Active Substance: EXENATIDE
     Route: 058
     Dates: start: 201507

REACTIONS (5)
  - Flatulence [Unknown]
  - Constipation [Unknown]
  - Insomnia [Unknown]
  - Abdominal pain [Unknown]
  - Diarrhoea [Unknown]
